FAERS Safety Report 6762588-5 (Version None)
Quarter: 2010Q2

REPORT INFORMATION
  Report Type: 
  Country: None (occurrence: None)
  Receive Date: 20100609
  Receipt Date: 20100603
  Transmission Date: 20101027
  Serious: Yes (Death)
  Sender: FDA-Public Use
  Company Number: US-CELGENEUS-163-21880-10060358

PATIENT
  Sex: Male

DRUGS (4)
  1. REVLIMID [Suspect]
     Route: 048
     Dates: start: 20100101, end: 20100101
  2. REVLIMID [Suspect]
     Route: 048
     Dates: start: 20080601, end: 20080101
  3. REVLIMID [Suspect]
     Route: 048
     Dates: start: 20090101, end: 20090101
  4. REVLIMID [Suspect]
     Route: 048
     Dates: start: 20090324, end: 20090101

REACTIONS (3)
  - CARDIAC FAILURE CONGESTIVE [None]
  - CELLULITIS [None]
  - DEATH [None]
